FAERS Safety Report 25708979 (Version 1)
Quarter: 2025Q3

REPORT INFORMATION
  Report Type: Spontaneous
  Country: BR (occurrence: BR)
  Receive Date: 20250821
  Receipt Date: 20250821
  Transmission Date: 20251020
  Serious: Yes (Other)
  Sender: STRIDES
  Company Number: BR-STRIDES ARCOLAB LIMITED-2025SP010611

PATIENT
  Age: 55 Year
  Sex: Female

DRUGS (8)
  1. PREDNISOLONE [Suspect]
     Active Substance: PREDNISOLONE
     Indication: Hypercalcaemia
     Route: 065
  2. PREDNISOLONE [Suspect]
     Active Substance: PREDNISOLONE
     Indication: Renal impairment
  3. CINACALCET [Suspect]
     Active Substance: CINACALCET
     Indication: Hypercalcaemia
     Route: 065
  4. CINACALCET [Suspect]
     Active Substance: CINACALCET
     Indication: Renal impairment
     Route: 065
  5. FUROSEMIDE [Suspect]
     Active Substance: FUROSEMIDE
     Indication: Hypercalcaemia
     Route: 065
  6. FUROSEMIDE [Suspect]
     Active Substance: FUROSEMIDE
     Indication: Renal impairment
  7. DENOSUMAB [Concomitant]
     Active Substance: DENOSUMAB
     Indication: Hypercalcaemia
     Route: 065
  8. ZOLEDRONIC ACID [Concomitant]
     Active Substance: ZOLEDRONIC ACID
     Indication: Hypercalcaemia
     Route: 065

REACTIONS (4)
  - Renal impairment [Unknown]
  - Therapeutic response decreased [Unknown]
  - Drug effective for unapproved indication [Unknown]
  - Off label use [Unknown]
